FAERS Safety Report 14329262 (Version 4)
Quarter: 2025Q4

REPORT INFORMATION
  Report Type: Spontaneous
  Country: EU (occurrence: EU)
  Receive Date: 20171227
  Receipt Date: 20251126
  Transmission Date: 20260117
  Serious: Yes (Other)
  Sender: SANOFI AVENTIS
  Company Number: None

PATIENT
  Age: 47 Year
  Sex: Female

DRUGS (6)
  1. TAXOTERE [Suspect]
     Active Substance: DOCETAXEL
     Indication: Breast cancer female
     Dosage: 130 MG, QCY
     Route: 042
     Dates: start: 20160107, end: 20160107
  2. TAXOTERE [Suspect]
     Active Substance: DOCETAXEL
     Dosage: 130 MG, QCY
     Route: 042
     Dates: start: 20170526, end: 20170526
  3. PERJETA [Suspect]
     Active Substance: PERTUZUMAB
     Indication: Breast cancer female
     Dosage: 420 MG, QCY
     Route: 042
     Dates: start: 20161212, end: 20161212
  4. PERJETA [Suspect]
     Active Substance: PERTUZUMAB
     Dosage: 420 MG, QCY
     Route: 042
     Dates: start: 20170526, end: 20170526
  5. HERCEPTIN [Suspect]
     Active Substance: TRASTUZUMAB
     Indication: Breast cancer female
     Dosage: 420 MG,QCY
     Route: 042
     Dates: start: 20160107, end: 20160107
  6. HERCEPTIN [Suspect]
     Active Substance: TRASTUZUMAB
     Dosage: 420 MG,QCY
     Route: 042
     Dates: start: 20170526, end: 20170526

REACTIONS (5)
  - Asthenia [Recovered/Resolved]
  - Pyrexia [Recovered/Resolved]
  - Breast pain [Recovered/Resolved]
  - Hyperpyrexia [Recovered/Resolved]
  - Pain [Recovered/Resolved]

NARRATIVE: CASE EVENT DATE: 20170324
